FAERS Safety Report 7569935-5 (Version None)
Quarter: 2011Q2

REPORT INFORMATION
  Report Type: 
  Country: None (occurrence: None)
  Receive Date: 20110622
  Receipt Date: 20110622
  Transmission Date: 20111010
  Serious: Yes (Other)
  Sender: FDA-Public Use
  Company Number: None

PATIENT
  Age: 49 Year
  Sex: Female
  Weight: 77.1115 kg

DRUGS (1)
  1. ZOLPIDEM [Suspect]
     Indication: INSOMNIA
     Dosage: ONE TABLET AT BEDTIME PO RARELY
     Route: 048
     Dates: start: 20100927, end: 20110620

REACTIONS (2)
  - ECONOMIC PROBLEM [None]
  - SOMNAMBULISM [None]
